FAERS Safety Report 25402323 (Version 1)
Quarter: 2025Q2

REPORT INFORMATION
  Report Type: Spontaneous
  Country: HR (occurrence: HR)
  Receive Date: 20250605
  Receipt Date: 20250605
  Transmission Date: 20250717
  Serious: Yes (Other)
  Sender: SANDOZ
  Company Number: HR-SANDOZ-SDZ2025HR038898

PATIENT
  Age: 56 Year
  Sex: Male

DRUGS (4)
  1. METHOTREXATE [Suspect]
     Active Substance: METHOTREXATE
     Indication: Dermatosis
     Dosage: 12.5 MG, QW
     Route: 065
  2. METHOTREXATE [Suspect]
     Active Substance: METHOTREXATE
     Indication: Hidradenitis
     Dosage: 25 MG, QW
     Route: 058
     Dates: start: 202003
  3. PREDNISONE [Concomitant]
     Active Substance: PREDNISONE
     Indication: Dermatosis
     Dosage: 10 MG, QD
     Route: 065
     Dates: start: 202003
  4. SULFASALAZINE [Concomitant]
     Active Substance: SULFASALAZINE
     Indication: Product used for unknown indication
     Dosage: 500 MG, QD, FOR 12 WEEKS
     Route: 065

REACTIONS (2)
  - Oromandibular dystonia [Unknown]
  - Neurotoxicity [Unknown]
